FAERS Safety Report 7232511-8 (Version None)
Quarter: 2011Q1

REPORT INFORMATION
  Report Type: 
  Country: None (occurrence: None)
  Receive Date: 20110119
  Receipt Date: 20110118
  Transmission Date: 20110831
  Serious: Yes (Hospitalization, Other)
  Sender: FDA-Public Use
  Company Number: NL-ROXANE LABORATORIES, INC.-2010-DE-07034GD

PATIENT
  Age: 28 Year
  Sex: Male

DRUGS (4)
  1. PREDNISONE [Suspect]
     Indication: ACUTE FEBRILE NEUTROPHILIC DERMATOSIS
     Dosage: INITIALLY 1MG/KG, THEN TAPERED DOWN TO 30 MG ONCE DAILY
  2. CYCLOSPORINE [Concomitant]
     Indication: ACUTE FEBRILE NEUTROPHILIC DERMATOSIS
     Dosage: 250 MG
  3. AZATHIOPRINE [Suspect]
     Indication: ACUTE FEBRILE NEUTROPHILIC DERMATOSIS
     Dosage: 100 MG
  4. CYCLOSPORINE [Concomitant]
     Dosage: 200 MG

REACTIONS (4)
  - BONE MARROW FAILURE [None]
  - OSTEOPENIA [None]
  - OSTEONECROSIS [None]
  - OSTEOPOROSIS [None]
